FAERS Safety Report 15155733 (Version 4)
Quarter: 2019Q2

REPORT INFORMATION
  Report Type: Spontaneous
  Country: JP (occurrence: JP)
  Receive Date: 20180717
  Receipt Date: 20190605
  Transmission Date: 20190711
  Serious: Yes (Hospitalization, Other)
  Sender: FDA-Public Use
  Company Number: JP-BRISTOL-MYERS SQUIBB COMPANY-BMS-2018-066441

PATIENT
  Age: 75 Year
  Sex: Male

DRUGS (1)
  1. OPDIVO [Suspect]
     Active Substance: NIVOLUMAB
     Indication: GASTRIC CANCER
     Dosage: 3 MG/KG, Q2WK
     Route: 041
     Dates: start: 20180529, end: 20180703

REACTIONS (5)
  - Malaise [Recovering/Resolving]
  - Decreased appetite [Recovering/Resolving]
  - Hypothalamo-pituitary disorder [Recovering/Resolving]
  - Hypotension [Recovering/Resolving]
  - Hypopituitarism [Unknown]

NARRATIVE: CASE EVENT DATE: 20180710
